FAERS Safety Report 6518492-0 (Version None)
Quarter: 2009Q4

REPORT INFORMATION
  Report Type: 
  Country: None (occurrence: None)
  Receive Date: 20091226
  Receipt Date: 20091215
  Transmission Date: 20100525
  Serious: Yes (Other)
  Sender: FDA-Public Use
  Company Number: US-JNJFOC-20091205588

PATIENT
  Sex: Female
  Weight: 68.04 kg

DRUGS (2)
  1. LEVAQUIN [Suspect]
     Indication: UPPER RESPIRATORY TRACT INFECTION
     Route: 048
     Dates: start: 20080129, end: 20080208
  2. ADVIL [Concomitant]
     Indication: PAIN
     Route: 065

REACTIONS (3)
  - JOINT SWELLING [None]
  - MENISCUS LESION [None]
  - PAIN [None]
